FAERS Safety Report 18610684 (Version 1)
Quarter: 2020Q4

REPORT INFORMATION
  Report Type: Spontaneous
  Country: US (occurrence: US)
  Receive Date: 20201211
  Receipt Date: 20201211
  Transmission Date: 20210114
  Serious: Yes (Other)
  Sender: FDA-Public Use
  Company Number: None

PATIENT
  Age: 40 Year
  Sex: Female
  Weight: 89.55 kg

DRUGS (1)
  1. SULFAMETHOXAZOLE-TRIMETHOPRIM DS 800MG- 160MG [Suspect]
     Active Substance: SULFAMETHOXAZOLE\TRIMETHOPRIM
     Indication: SWELLING
     Dosage: ?          QUANTITY:1 TABLET(S);?
     Route: 048
     Dates: start: 20201205, end: 20201206

REACTIONS (2)
  - Autonomic nervous system imbalance [None]
  - Blood potassium increased [None]

NARRATIVE: CASE EVENT DATE: 20201206
